FAERS Safety Report 5046812-5 (Version None)
Quarter: 2006Q3

REPORT INFORMATION
  Report Type: 
  Country: None (occurrence: None)
  Receive Date: 20060705
  Receipt Date: 20060705
  Transmission Date: 20061208
  Serious: Yes (Other)
  Sender: FDA-Public Use
  Company Number: None

PATIENT
  Age: 58 Year
  Sex: Male

DRUGS (4)
  1. UROXATRAL [Suspect]
     Dosage: 10MG QD PO
     Route: 048
     Dates: start: 20060207, end: 20060428
  2. VARDENAFIL [Concomitant]
  3. ACYCLOVIR [Concomitant]
  4. QUETIAPINE FUMARATE [Concomitant]

REACTIONS (2)
  - LETHARGY [None]
  - MYALGIA [None]
